FAERS Safety Report 15405769 (Version 12)
Quarter: 2018Q4

REPORT INFORMATION
  Report Type: Report from Study
  Country: ES (occurrence: ES)
  Receive Date: 20180920
  Receipt Date: 20181121
  Transmission Date: 20190204
  Serious: Yes (Life-Threatening, Hospitalization)
  Sender: FDA-Public Use
  Company Number: ES-AMGEN-ESPCT2018128885

PATIENT
  Age: 14 Year
  Sex: Male
  Weight: 36 kg

DRUGS (34)
  1. OMEPRAZOLE. [Concomitant]
     Active Substance: OMEPRAZOLE
     Dosage: 20 MG, UNK
     Dates: start: 20180716
  2. MORPHINE [Concomitant]
     Active Substance: MORPHINE
     Dosage: 3-4 MG, UNK
     Route: 042
     Dates: start: 20180716, end: 20180929
  3. VORICONAZOLE. [Concomitant]
     Active Substance: VORICONAZOLE
     Dosage: 200-325 MG, UNK
     Dates: start: 20180814
  4. SULFAMETHOXAZOLE [Concomitant]
     Active Substance: SULFAMETHOXAZOLE
     Dosage: 400 MG, UNK
     Route: 048
     Dates: start: 20180716, end: 20180929
  5. DAUNORUBICIN [Concomitant]
     Active Substance: DAUNORUBICIN
     Indication: ACUTE LYMPHOCYTIC LEUKAEMIA
     Dosage: 32 MG, UNK
     Dates: start: 20180723
  6. METHOTREXATE. [Suspect]
     Active Substance: METHOTREXATE
     Indication: ACUTE LYMPHOCYTIC LEUKAEMIA
     Dosage: 15 MG, UNK
     Route: 037
     Dates: start: 20180903
  7. PEG/L-ASPARAGINASE [Suspect]
     Active Substance: PEGASPARGASE
     Indication: ACUTE LYMPHOCYTIC LEUKAEMIA
     Dosage: 3150 UNK, UNK
     Route: 065
     Dates: start: 20180719
  8. VINCRISTINE [Suspect]
     Active Substance: VINCRISTINE
     Indication: ACUTE LYMPHOCYTIC LEUKAEMIA
     Dosage: 1.8-1.9 MG, UNK
     Route: 065
     Dates: start: 20180730
  9. CYTARABINE. [Suspect]
     Active Substance: CYTARABINE
     Indication: ACUTE LYMPHOCYTIC LEUKAEMIA
     Dosage: 90 MG, UNK
     Route: 065
     Dates: start: 20180827
  10. MACROGOL [Concomitant]
     Active Substance: POLYETHYLENE GLYCOLS
     Dosage: 4-27.6 G, UNK
     Route: 048
     Dates: start: 20180717
  11. CIPROFLOXACIN. [Concomitant]
     Active Substance: CIPROFLOXACIN
     Dosage: 400-500 MG, UNK
     Dates: start: 20180906
  12. METAMIZOLE [Concomitant]
     Active Substance: METAMIZOLE
     Dosage: 5 ML, UNK AND 1500 MG, UNK
     Route: 042
     Dates: start: 20180716
  13. METOTREXATE [Concomitant]
     Active Substance: METHOTREXATE SODIUM
     Dosage: 15 MG, UNK
     Route: 037
     Dates: start: 20180827, end: 20180827
  14. AMPHOTERICIN B, LIPOSOME [Concomitant]
     Active Substance: AMPHOTERICIN B
     Dosage: 100 MG, UNK
     Route: 042
     Dates: start: 20180829
  15. MEROPENEM. [Concomitant]
     Active Substance: MEROPENEM
     Dosage: 750-800 MG, UNK
     Route: 042
     Dates: start: 20180712, end: 20181009
  16. CYCLOPHOSPHAMIDE. [Suspect]
     Active Substance: CYCLOPHOSPHAMIDE
     Indication: ACUTE LYMPHOCYTIC LEUKAEMIA
     Dosage: 1200 MG, UNK
     Route: 065
     Dates: start: 20180827
  17. LORAZEPAM. [Concomitant]
     Active Substance: LORAZEPAM
     Dosage: 1-2 MG, UNK
     Route: 048
     Dates: start: 20180716, end: 20180929
  18. ONDANSETRON [Concomitant]
     Active Substance: ONDANSETRON
     Dosage: 4-6 MG, UNK
     Dates: start: 20180717
  19. PARACETAMOL [Concomitant]
     Active Substance: ACETAMINOPHEN
     Dosage: 600-650 MG, UNK
     Dates: start: 20180716, end: 20180828
  20. MESNA. [Concomitant]
     Active Substance: MESNA
     Dosage: 400 MG, UNK
     Route: 042
     Dates: start: 20180827, end: 20180827
  21. MICAFUNGIN. [Concomitant]
     Active Substance: MICAFUNGIN SODIUM
     Dosage: 50 MG, UNK
     Route: 042
     Dates: start: 20180716, end: 20180814
  22. TRIMETHOPRIM. [Concomitant]
     Active Substance: TRIMETHOPRIM
     Dosage: 80 MG, UNK
     Route: 048
     Dates: start: 20180716, end: 20180928
  23. 6-MERCAPTOPURINE MONOHYDRATE [Suspect]
     Active Substance: MERCAPTOPURINE
     Indication: ACUTE LYMPHOCYTIC LEUKAEMIA
     Dosage: 50 MG, UNK
     Route: 065
     Dates: start: 20180827
  24. HYDROXYCARBAMIDE [Concomitant]
     Active Substance: HYDROXYUREA
     Dosage: 500 MG, UNK
     Route: 048
     Dates: start: 20180711, end: 20180715
  25. POTASSIUM CHLORIDE. [Concomitant]
     Active Substance: POTASSIUM CHLORIDE
     Dosage: 600 MG, UNK
     Route: 048
     Dates: start: 20180813, end: 20180906
  26. BETAMETHASONE. [Concomitant]
     Active Substance: BETAMETHASONE
     Dosage: 1 UNK, UNK
     Route: 061
     Dates: start: 20180712, end: 20180720
  27. SALINE [Concomitant]
     Active Substance: SODIUM CHLORIDE
     Dosage: 50-100 UNK, UNK
     Route: 042
     Dates: start: 20180718, end: 20180812
  28. DEXCHLORPHENIRAMINE [Concomitant]
     Active Substance: DEXCHLORPHENIRAMINE
     Dosage: 2.5-5 MG, UNK
     Route: 042
     Dates: start: 20180910, end: 20180911
  29. CARFILZOMIB [Suspect]
     Active Substance: CARFILZOMIB
     Indication: ACUTE LYMPHOCYTIC LEUKAEMIA
     Dosage: 54 MG, PER CHEMO REGIM
     Route: 042
     Dates: start: 20180716
  30. FOSCARNET [Concomitant]
     Active Substance: FOSCARNET
     Dosage: 2 G, UNK AND 2000-2160 MG, UNK
     Route: 042
     Dates: start: 20180726
  31. DEXAMETHASONE. [Concomitant]
     Active Substance: DEXAMETHASONE
     Indication: ACUTE LYMPHOCYTIC LEUKAEMIA
     Dosage: 3.6-4 MG, UNK
     Dates: start: 20180718
  32. FUROSEMIDE. [Concomitant]
     Active Substance: FUROSEMIDE
     Dosage: 15-20 MG, UNK, 0.1 UNK, UNK
     Route: 042
     Dates: start: 20180717, end: 20180930
  33. IBUPROFEN. [Concomitant]
     Active Substance: IBUPROFEN
     Dosage: 600 MG, UNK
     Route: 048
     Dates: start: 20180704, end: 20180814
  34. ACICLOVIR [Concomitant]
     Active Substance: ACYCLOVIR
     Dosage: 200-300 MG, UNK AND 500 MG/M2, UNK
     Dates: start: 20180716, end: 20180929

REACTIONS (3)
  - Lung infection [Recovered/Resolved]
  - Pneumonia [Recovered/Resolved]
  - Mucosal inflammation [Recovered/Resolved]

NARRATIVE: CASE EVENT DATE: 20180913
